FAERS Safety Report 7753424-9 (Version None)
Quarter: 2011Q3

REPORT INFORMATION
  Report Type: 
  Country: None (occurrence: None)
  Receive Date: 20110915
  Receipt Date: 20110907
  Transmission Date: 20111222
  Serious: Yes (Other)
  Sender: FDA-Public Use
  Company Number: US-ASTRAZENECA-2011SE30830

PATIENT
  Age: 60 Year
  Sex: Female
  Weight: 80.7 kg

DRUGS (5)
  1. ESTRADIOL [Concomitant]
  2. SEROQUEL [Suspect]
     Route: 048
  3. DILTIAZEM [Concomitant]
  4. CLONIDINE [Concomitant]
  5. VALIUM [Concomitant]

REACTIONS (6)
  - CEREBROVASCULAR ACCIDENT [None]
  - TRANSIENT ISCHAEMIC ATTACK [None]
  - DRUG DOSE OMISSION [None]
  - MEMORY IMPAIRMENT [None]
  - ANXIETY [None]
  - BIPOLAR DISORDER [None]
